FAERS Safety Report 9630548 (Version 2)
Quarter: 2013Q4

REPORT INFORMATION
  Report Type: Report from Study
  Country: US (occurrence: US)
  Receive Date: 20131018
  Receipt Date: 20131111
  Transmission Date: 20140711
  Serious: Yes (Other)
  Sender: FDA-Public Use
  Company Number: PHEH2013US021581

PATIENT
  Age: 62 Year
  Sex: Female

DRUGS (5)
  1. GILENYA [Suspect]
     Indication: MULTIPLE SCLEROSIS
     Dosage: 0.5 MG, QD
     Route: 048
     Dates: start: 20110822
  2. NEURONTIN [Concomitant]
     Dosage: 100 G, TID (300 G QHS)
     Route: 048
  3. AMPYRA [Concomitant]
     Dosage: 10 MG, BID
     Route: 048
  4. SYNTHROID [Concomitant]
     Dosage: 75 UG, DAILY
     Route: 048
  5. ZOLOFT [Concomitant]
     Dosage: 50 MG, DAILY
     Route: 048

REACTIONS (5)
  - Blindness unilateral [Not Recovered/Not Resolved]
  - Ulcerative keratitis [Recovering/Resolving]
  - Eye pain [Not Recovered/Not Resolved]
  - Headache [Not Recovered/Not Resolved]
  - Vision blurred [Unknown]
